FAERS Safety Report 6418315-4 (Version None)
Quarter: 2009Q4

REPORT INFORMATION
  Report Type: 
  Country: None (occurrence: None)
  Receive Date: 20091028
  Receipt Date: 20091026
  Transmission Date: 20100525
  Serious: Yes (Hospitalization)
  Sender: FDA-Public Use
  Company Number: US-B.I. PHARMACEUTICALS,INC./RIDGEFIELD-2009-BP-12502BP

PATIENT
  Age: 40 Year
  Sex: Female

DRUGS (2)
  1. SPIRIVA [Suspect]
     Dates: start: 20060101, end: 20090701
  2. ALBUTEROL [Concomitant]
     Route: 055

REACTIONS (2)
  - DRUG INEFFECTIVE [None]
  - DYSPNOEA [None]
